FAERS Safety Report 22528780 (Version 1)
Quarter: 2023Q2

REPORT INFORMATION
  Report Type: Spontaneous
  Country: US (occurrence: US)
  Receive Date: 20230607
  Receipt Date: 20230607
  Transmission Date: 20230721
  Serious: No
  Sender: FDA-Public Use
  Company Number: US-CADILA HEALTHCARE LIMITED-US-ZYDUS-087492

PATIENT

DRUGS (1)
  1. VENLAFAXINE HYDROCHLORIDE [Suspect]
     Active Substance: VENLAFAXINE HYDROCHLORIDE
     Indication: Vertigo
     Dosage: , BID
     Dates: start: 20220901

REACTIONS (7)
  - Product use in unapproved indication [Recovered/Resolved]
  - Vertigo positional [Recovered/Resolved]
  - Drug ineffective for unapproved indication [Recovered/Resolved]
  - Product substitution issue [Recovered/Resolved]
  - Somnolence [Unknown]
  - Yawning [Unknown]
  - Hyperhidrosis [Unknown]

NARRATIVE: CASE EVENT DATE: 20220901
